FAERS Safety Report 10349385 (Version 3)
Quarter: 2014Q3

REPORT INFORMATION
  Report Type: Spontaneous
  Country: IT (occurrence: IT)
  Receive Date: 20140730
  Receipt Date: 20140918
  Transmission Date: 20150326
  Serious: Yes (Hospitalization, Other)
  Sender: FDA-Public Use
  Company Number: IT-BRISTOL-MYERS SQUIBB COMPANY-21230537

PATIENT
  Age: 58 Year
  Sex: Male

DRUGS (4)
  1. URSACOL [Concomitant]
     Active Substance: URSODIOL
     Route: 048
     Dates: start: 20140430, end: 20140508
  2. PANTOPRAZOLE [Interacting]
     Active Substance: PANTOPRAZOLE SODIUM
     Dosage: 40 MG TABS
     Route: 048
     Dates: start: 20140423, end: 20140508
  3. COUMADIN [Suspect]
     Active Substance: WARFARIN SODIUM
     Dosage: 1DF: 1 UNIT
     Route: 048
     Dates: start: 20140328, end: 20140508
  4. URSODEOXYCHOLIC ACID [Concomitant]
     Active Substance: URSODIOL
     Dosage: CAPSULE
     Route: 048
     Dates: start: 20140403, end: 20140508

REACTIONS (5)
  - Melaena [Unknown]
  - Drug interaction [Unknown]
  - Anaemia [Recovering/Resolving]
  - International normalised ratio increased [Recovering/Resolving]
  - Haematuria [Unknown]

NARRATIVE: CASE EVENT DATE: 2014
